FAERS Safety Report 6207462-8 (Version None)
Quarter: 2009Q2

REPORT INFORMATION
  Report Type: 
  Country: None (occurrence: None)
  Receive Date: 20090528
  Receipt Date: 20090520
  Transmission Date: 20091009
  Serious: Yes (Other)
  Sender: FDA-Public Use
  Company Number: US-PFIZER INC-2009218692

PATIENT
  Sex: Male
  Weight: 96.615 kg

DRUGS (3)
  1. VERAPAMIL HCL [Suspect]
  2. VERAPAMIL HCL [Suspect]
     Dosage: 240 MG, 1X/DAY
  3. EXTRA STRENGTH TYLENOL [Concomitant]

REACTIONS (4)
  - BLOOD PRESSURE INADEQUATELY CONTROLLED [None]
  - CONSTIPATION [None]
  - INFECTION [None]
  - OEDEMA [None]
